FAERS Safety Report 19080456 (Version 3)
Quarter: 2021Q2

REPORT INFORMATION
  Report Type: Spontaneous
  Country: US (occurrence: US)
  Receive Date: 20210331
  Receipt Date: 20210518
  Transmission Date: 20210717
  Serious: Yes (Other)
  Sender: FDA-Public Use
  Company Number: US-PFIZER INC-2017026664

PATIENT
  Age: 36 Year
  Sex: Male
  Weight: 69 kg

DRUGS (6)
  1. BENEFIX [Suspect]
     Active Substance: COAGULATION FACTOR IX RECOMBINANT HUMAN\ISOPROPYL ALCOHOL
     Indication: FACTOR IX DEFICIENCY
     Dosage: INFUSE 6900 UNITS (ACTUAL)= 100 U/KG (+/? 10 %)= 2000 U/VIAL (NORMAL) X 3 VAILS + 1000 U/VIAL DAILY
  2. BENEFIX [Suspect]
     Active Substance: COAGULATION FACTOR IX RECOMBINANT HUMAN\ISOPROPYL ALCOHOL
     Dosage: INFUSE BENEFIX 7300 UNITS (+/?10%) = 100 UNITS/KG EVERY OTHER DAY)
  3. BENEFIX [Suspect]
     Active Substance: COAGULATION FACTOR IX RECOMBINANT HUMAN\ISOPROPYL ALCOHOL
     Dosage: INFUSE BENEFIX 7300 UNITS (+/?10%) = 100 UNITS/KG DAILY X14 DAYS)
  4. BENEFIX [Suspect]
     Active Substance: COAGULATION FACTOR IX RECOMBINANT HUMAN\ISOPROPYL ALCOHOL
     Indication: HAEMORRHAGE
     Dosage: INFUSE BENEFIX 7300 UNITS (+/?10%) = 100 UNITSLKG DAILY X 1 ON DEMAND FOR BLEEDS
  5. BENEFIX [Suspect]
     Active Substance: COAGULATION FACTOR IX RECOMBINANT HUMAN\ISOPROPYL ALCOHOL
     Dosage: 7300 IU, DAILY INFUSE BENEFIX 7300 UNITS (+/?10%) = 100 UNITS/KG DAILY)
  6. BENEFIX [Suspect]
     Active Substance: COAGULATION FACTOR IX RECOMBINANT HUMAN\ISOPROPYL ALCOHOL
     Dosage: INFUSE BENEFIX 7300 UNITS (+/?10%) = 100 UNITS/KG DAILY X 4

REACTIONS (3)
  - Expired product administered [Unknown]
  - Haemarthrosis [Unknown]
  - Haemorrhage [Unknown]
